FAERS Safety Report 8356697-7 (Version None)
Quarter: 2012Q2

REPORT INFORMATION
  Report Type: 
  Country: None (occurrence: None)
  Receive Date: 20120514
  Receipt Date: 20120511
  Transmission Date: 20120825
  Serious: Yes (Other)
  Sender: FDA-Public Use
  Company Number: PHHY2012NL040330

PATIENT
  Sex: Male

DRUGS (2)
  1. ZOMETA [Suspect]
     Dosage: 4 MG/100 ML, 1X PER 84 DAYS
     Dates: start: 20120229
  2. ZOMETA [Suspect]
     Indication: PROSTATE CANCER METASTATIC
     Dosage: 4 MG/100 ML, 1X PER 84 DAYS

REACTIONS (2)
  - CARCINOEMBRYONIC ANTIGEN INCREASED [None]
  - FRACTURE [None]
